FAERS Safety Report 9304011 (Version 1)
Quarter: 2013Q2

REPORT INFORMATION
  Report Type: Spontaneous
  Country: US (occurrence: US)
  Receive Date: 20130522
  Receipt Date: 20130522
  Transmission Date: 20140414
  Serious: No
  Sender: FDA-Public Use
  Company Number: US-BAYER-2013-063759

PATIENT
  Sex: Female

DRUGS (5)
  1. BETASERON [Suspect]
     Indication: MULTIPLE SCLEROSIS
     Dosage: UNK
     Dates: start: 200805, end: 201105
  2. AVONEX [Concomitant]
  3. VITAMIN D [Concomitant]
  4. VITAMIN B [Concomitant]
  5. MULTIVITAMIN [Concomitant]

REACTIONS (2)
  - Influenza like illness [Not Recovered/Not Resolved]
  - Pain [Not Recovered/Not Resolved]
